FAERS Safety Report 5691883-6 (Version None)
Quarter: 2008Q1

REPORT INFORMATION
  Report Type: 
  Country: None (occurrence: None)
  Receive Date: 20080331
  Receipt Date: 20080318
  Transmission Date: 20080703
  Serious: Yes (Death, Other)
  Sender: FDA-Public Use
  Company Number: 100#03#2008-01624

PATIENT
  Age: 66 Year
  Sex: Male

DRUGS (11)
  1. CITALOPRAM (CITALOPRAM) [Suspect]
     Indication: DEPRESSION
     Dosage: 20 MG ONCE
     Dates: start: 20070601, end: 20070601
  2. CITALOPRAM (CITALOPRAM) [Suspect]
     Indication: DEPRESSION
     Dosage: 20 MG ONCE
     Dates: start: 20070402
  3. MIRTAZAPINE [Suspect]
     Indication: DRUG USE FOR UNKNOWN INDICATION
     Dosage: ONCE
     Dates: start: 20070601, end: 20070601
  4. ACETAMINOPHEN [Suspect]
     Indication: DRUG USE FOR UNKNOWN INDICATION
     Dosage: ONCE
     Dates: start: 20070601, end: 20070601
  5. ETORICOXIB (ETORICOXIB) [Suspect]
     Indication: MUSCULOSKELETAL PAIN
     Dosage: 90 MG ORAL ONCE
     Route: 048
     Dates: start: 20070601, end: 20070601
  6. ETORICOXIB (ETORICOXIB) [Suspect]
     Indication: MUSCULOSKELETAL PAIN
     Dosage: 90 MG ORAL ONCE
     Route: 048
     Dates: start: 20070322
  7. OXYCODONE HCL [Suspect]
     Indication: MUSCULOSKELETAL PAIN
     Dosage: 80 MG ONCE
     Dates: end: 20070416
  8. OXYCODONE HCL [Suspect]
     Indication: MUSCULOSKELETAL PAIN
     Dosage: 80 MG ONCE
     Dates: start: 20070601, end: 20070601
  9. DICLOFENAC SODIUM [Concomitant]
  10. DIHYDROCODEINE COMPOUND [Concomitant]
  11. OXAZEPAM [Concomitant]

REACTIONS (3)
  - CORONARY ARTERY DISEASE [None]
  - DRUG INTERACTION [None]
  - MULTIPLE DRUG OVERDOSE [None]
